FAERS Safety Report 8988288 (Version 1)
Quarter: 2012Q4

REPORT INFORMATION
  Report Type: 
  Country: US (occurrence: US)
  Receive Date: 20121227
  Receipt Date: 20121227
  Transmission Date: 20130627
  Serious: Yes (Other)
  Sender: FDA-Public Use
  Company Number: US-JNJFOC-20121210274

PATIENT
  Sex: Female

DRUGS (2)
  1. NORGESTIMATE/ETHINYL ESTRADIOL [Suspect]
     Indication: CONTRACEPTION
     Dosage: 35 micrograms ethinyl estradiol and 0.18/0.215/0.25 mg norgestimate
     Route: 048
  2. NORGESTIMATE/ETHINYL ESTRADIOL [Suspect]
     Indication: CONTRACEPTION
     Dosage: 25 micrograms ethinyl estradiol and 0.18/0.215/0.25 mg norgestimate
     Route: 048

REACTIONS (10)
  - Ectopic pregnancy [Unknown]
  - Asthma [Unknown]
  - Colitis ulcerative [Unknown]
  - Cholecystectomy [Unknown]
  - Hemiplegic migraine [Unknown]
  - Pregnancy on oral contraceptive [Unknown]
  - Exposure during pregnancy [Unknown]
  - Syncope [Unknown]
  - Gastroenteritis [Unknown]
  - Upper respiratory tract infection [Unknown]
